FAERS Safety Report 25196853 (Version 2)
Quarter: 2025Q2

REPORT INFORMATION
  Report Type: Spontaneous
  Country: US (occurrence: US)
  Receive Date: 20250415
  Receipt Date: 20250516
  Transmission Date: 20250717
  Serious: Yes (Other)
  Sender: REGENERON
  Company Number: US-REGENERON PHARMACEUTICALS, INC.-2025-063119

PATIENT
  Sex: Female

DRUGS (1)
  1. EYLEA [Suspect]
     Active Substance: AFLIBERCEPT
     Indication: Macular degeneration
     Dates: start: 2022

REACTIONS (2)
  - Hallucination [Recovered/Resolved]
  - Impaired driving ability [Recovered/Resolved]

NARRATIVE: CASE EVENT DATE: 20220101
